FAERS Safety Report 24524388 (Version 1)
Quarter: 2024Q4

REPORT INFORMATION
  Report Type: Report from Study
  Country: US (occurrence: US)
  Receive Date: 20241018
  Receipt Date: 20241018
  Transmission Date: 20250115
  Serious: Yes (Hospitalization)
  Sender: ABBVIE
  Company Number: US-ABBVIE-5966347

PATIENT
  Sex: Female

DRUGS (1)
  1. VENCLEXTA [Suspect]
     Active Substance: VENETOCLAX
     Indication: Chronic lymphocytic leukaemia
     Route: 048
     Dates: start: 202409

REACTIONS (7)
  - Thrombosis [Unknown]
  - Erythema [Unknown]
  - Decreased appetite [Unknown]
  - Fatigue [Unknown]
  - Contusion [Unknown]
  - Joint swelling [Unknown]
  - Nausea [Unknown]

NARRATIVE: CASE EVENT DATE: 20240101
